FAERS Safety Report 17105794 (Version 2)
Quarter: 2019Q4

REPORT INFORMATION
  Report Type: Spontaneous
  Country: LV (occurrence: LV)
  Receive Date: 20191203
  Receipt Date: 20191220
  Transmission Date: 20200122
  Serious: Yes (Hospitalization)
  Sender: FDA-Public Use
  Company Number: LV-TEVA-2019-LV-1139403

PATIENT
  Age: 73 Year
  Sex: Female

DRUGS (12)
  1. THIAMAZOL [Concomitant]
     Active Substance: METHIMAZOLE
  2. DIGOXIN. [Concomitant]
     Active Substance: DIGOXIN
  3. TORASEMIDE [Concomitant]
     Active Substance: TORSEMIDE
  4. SPIRONOLACTON [Concomitant]
     Active Substance: SPIRONOLACTONE
  5. METFORMIN [Concomitant]
     Active Substance: METFORMIN HYDROCHLORIDE
  6. WARFARIN [Concomitant]
     Active Substance: WARFARIN
  7. ATORVASTATIN [Concomitant]
     Active Substance: ATORVASTATIN
  8. AMOXICILLIN/CLAVULANIC ACID [Suspect]
     Active Substance: AMOXICILLIN\CLAVULANIC ACID
     Route: 065
  9. SILDENAFIL. [Concomitant]
     Active Substance: SILDENAFIL
  10. BISOPROLOL/PERINDOPRIL [Concomitant]
     Active Substance: BISOPROLOL\PERINDOPRIL
  11. ALLOPURINOL. [Concomitant]
     Active Substance: ALLOPURINOL
  12. PANTOPRAZOLE [Concomitant]
     Active Substance: PANTOPRAZOLE

REACTIONS (5)
  - Rash macular [Recovering/Resolving]
  - Erythema [Recovering/Resolving]
  - Vasculitis [Recovering/Resolving]
  - C-reactive protein increased [Recovering/Resolving]
  - Blood creatinine increased [Recovering/Resolving]
